FAERS Safety Report 4798031-5 (Version None)
Quarter: 2005Q3

REPORT INFORMATION
  Report Type: 
  Country: None (occurrence: None)
  Receive Date: 20050929
  Receipt Date: 20050816
  Transmission Date: 20060218
  Serious: No
  Sender: FDA-Public Use
  Company Number: 05P-163-0308478-00

PATIENT
  Age: 66 Year
  Sex: Female
  Weight: 52.1637 kg

DRUGS (4)
  1. HUMIRA [Suspect]
     Indication: RHEUMATOID ARTHRITIS
     Dosage: 40 MG, 1 IN 2 WK, SUBCUTANEOUS
     Route: 058
     Dates: start: 20050701, end: 20050701
  2. ALENDRONATE SODIUM [Concomitant]
  3. CALCIUM CARBONATE [Concomitant]
  4. VITAMINS [Concomitant]

REACTIONS (3)
  - INJECTION SITE ERYTHEMA [None]
  - NIGHT SWEATS [None]
  - PYREXIA [None]
